FAERS Safety Report 8623658 (Version 4)
Quarter: 2012Q4

REPORT INFORMATION
  Report Type: Report from Study
  Country: JP (occurrence: JP)
  Receive Date: 20120620
  Receipt Date: 20121119
  Transmission Date: 20130627
  Serious: Yes (Hospitalization, Other)
  Sender: FDA-Public Use
  Company Number: JP-ASTELLAS-2012US005470

PATIENT
  Age: 59 Year
  Sex: Male
  Weight: 75 kg

DRUGS (11)
  1. ERLOTINIB TABLET [Suspect]
     Indication: ADENOCARCINOMA PANCREAS
     Dosage: 100 mg, UID/QD
     Route: 048
     Dates: start: 20120411, end: 20120502
  2. GEMCITABINE [Suspect]
     Indication: ADENOCARCINOMA PANCREAS
     Dosage: 1000 mg/m2, UID/QD
     Route: 041
     Dates: start: 20120411, end: 20120411
  3. GEMCITABINE [Suspect]
     Dosage: 1000 mg/m2, UID/QD
     Route: 041
     Dates: start: 20120418, end: 20120418
  4. GEMCITABINE [Suspect]
     Dosage: 1000 mg/m2, UID/QD
     Route: 041
     Dates: start: 20120425, end: 20120425
  5. CLOTIAZEPAM [Concomitant]
     Indication: PRODUCT USED FOR UNKNOWN INDICATION
     Dosage: 15 mg, UID/QD
     Route: 048
  6. LOXOPROFEN                         /00890702/ [Concomitant]
     Indication: ADENOCARCINOMA PANCREAS
     Dosage: 60-120mg for ton
     Route: 065
     Dates: start: 20120417
  7. LOXOPROFEN                         /00890702/ [Concomitant]
     Indication: PYREXIA
     Dosage: 180 mg, UID/QD
     Route: 048
     Dates: start: 20120418
  8. LENDORMIN [Concomitant]
     Indication: PRODUCT USED FOR UNKNOWN INDICATION
     Dosage: 0.25 mg, UID/QD
     Route: 048
  9. LANSOPRAZOLE [Concomitant]
     Indication: PROPHYLAXIS
     Dosage: 15 mg, UID/QD
     Route: 048
  10. GRANISETRON                        /01178102/ [Concomitant]
     Indication: PROPHYLAXIS
     Dosage: 1 mg, UID/QD
     Route: 042
  11. DEXART [Concomitant]
     Indication: PROPHYLAXIS
     Dosage: 6.6 mg, UID/QD
     Route: 042

REACTIONS (10)
  - Hyperglycaemia [Recovered/Resolved]
  - Platelet count decreased [Recovered/Resolved]
  - Blood albumin decreased [Recovered/Resolved]
  - Anaemia [Not Recovered/Not Resolved]
  - White blood cell count decreased [Recovered/Resolved]
  - Rash [Recovered/Resolved]
  - Depression [Recovering/Resolving]
  - Constipation [Recovering/Resolving]
  - Cholangitis [Recovered/Resolved]
  - Pyrexia [Recovering/Resolving]
